FAERS Safety Report 12854161 (Version 1)
Quarter: 2016Q4

REPORT INFORMATION
  Report Type: Spontaneous
  Country: US (occurrence: US)
  Receive Date: 20161017
  Receipt Date: 20161017
  Transmission Date: 20170207
  Serious: No
  Sender: FDA-Public Use
  Company Number: US-BIOCOMPATIBLES UK LTD-BTG00819

PATIENT

DRUGS (1)
  1. CROFAB [Suspect]
     Active Substance: CROTALIDAE POLYVALENT IMMUNE FAB (OVINE)
     Indication: SNAKE BITE
     Dosage: 14 VIALS, UNK
     Dates: start: 20150614, end: 20150615

REACTIONS (7)
  - Amenorrhoea [Unknown]
  - Immunoglobulins decreased [Unknown]
  - Skin haemorrhage [Unknown]
  - Peripheral swelling [Recovered/Resolved]
  - Menorrhagia [Unknown]
  - Pain [Unknown]
  - Blood immunoglobulin G decreased [Unknown]

NARRATIVE: CASE EVENT DATE: 20160701
